FAERS Safety Report 8499060-0 (Version None)
Quarter: 2012Q3

REPORT INFORMATION
  Report Type: 
  Country: None (occurrence: None)
  Receive Date: 20120710
  Receipt Date: 20120702
  Transmission Date: 20120928
  Serious: Yes (Hospitalization, Disabling, Other)
  Sender: FDA-Public Use
  Company Number: US-009507513-1203USA03334

PATIENT

DRUGS (7)
  1. FOSAMAX [Suspect]
     Indication: OSTEOPOROSIS
     Dosage: 70 MG, UNK
     Route: 048
     Dates: start: 20040701, end: 20091001
  2. FOSAMAX PLUS D [Suspect]
     Indication: OSTEOPOROSIS
     Dosage: 70 MG, UNK
     Route: 048
     Dates: start: 20040701, end: 20091001
  3. CALCIUM (UNSPECIFIED) [Concomitant]
     Indication: ROUTINE HEALTH MAINTENANCE
     Dosage: 600 MG, BID
     Route: 048
  4. FOSAMAX [Suspect]
     Indication: OSTEOPENIA
  5. FOSAMAX PLUS D [Suspect]
     Indication: OSTEOPENIA
  6. FOSAMAX [Suspect]
     Dosage: 70 MG, UNK
     Route: 048
     Dates: start: 20091001, end: 20100101
  7. FOSAMAX [Suspect]

REACTIONS (24)
  - BLOOD CHOLESTEROL INCREASED [None]
  - SCOLIOSIS [None]
  - SPINAL OSTEOARTHRITIS [None]
  - AXILLARY PAIN [None]
  - HYPERTENSION [None]
  - BIPOLAR DISORDER [None]
  - VERTIGO [None]
  - PAIN [None]
  - RIB FRACTURE [None]
  - BURSITIS [None]
  - ADVERSE EVENT [None]
  - FEMUR FRACTURE [None]
  - STRESS FRACTURE [None]
  - CATARACT [None]
  - HYPERCHOLESTEROLAEMIA [None]
  - OEDEMA [None]
  - BLOOD GLUCOSE ABNORMAL [None]
  - GLUCOSE TOLERANCE IMPAIRED [None]
  - MYOFASCIAL PAIN SYNDROME [None]
  - OSTEOPOROSIS [None]
  - LOW TURNOVER OSTEOPATHY [None]
  - FLUID RETENTION [None]
  - SUPRAVENTRICULAR TACHYCARDIA [None]
  - OSTEOARTHRITIS [None]
